FAERS Safety Report 8535990-9 (Version None)
Quarter: 2012Q3

REPORT INFORMATION
  Report Type: 
  Country: None (occurrence: None)
  Receive Date: 20120725
  Receipt Date: 20120723
  Transmission Date: 20120928
  Serious: Yes (Hospitalization)
  Sender: FDA-Public Use
  Company Number: PHHO2012DE010865

PATIENT
  Sex: Female
  Weight: 71.8 kg

DRUGS (6)
  1. METOPROLOL TARTRATE [Concomitant]
     Indication: HYPERTENSION
     Dosage: 475 MG, UNK
     Dates: start: 20100114
  2. PLACEBO [Suspect]
     Indication: BREAST CANCER METASTATIC
     Dosage: CODE NOT BROKEN
     Dates: start: 20091210
  3. AFINITOR [Suspect]
     Indication: BREAST CANCER METASTATIC
     Dosage: CODE NOT BROKEN
     Dates: start: 20091210
  4. BLINDED NO TREATMENT RECEIVED [Suspect]
     Indication: BREAST CANCER METASTATIC
     Dosage: CODE NOT BROKEN
     Dates: start: 20091210
  5. VITAMIN E [Concomitant]
     Indication: PROPHYLAXIS
     Dosage: 600 MG, UNK
     Dates: start: 20090101
  6. ZOLEDRONIC ACID [Suspect]

REACTIONS (1)
  - OSTEONECROSIS OF JAW [None]
